FAERS Safety Report 25029883 (Version 2)
Quarter: 2025Q2

REPORT INFORMATION
  Report Type: Spontaneous
  Country: CA (occurrence: CA)
  Receive Date: 20250303
  Receipt Date: 20250625
  Transmission Date: 20250716
  Serious: Yes (Death, Life-Threatening, Hospitalization, Disabling, Other)
  Sender: Haleon PLC
  Company Number: CA-002147023-NVSC2023CA170726

PATIENT
  Age: 44 Year
  Sex: Female
  Weight: 68 kg

DRUGS (810)
  1. VOLTAREN [Suspect]
     Active Substance: DICLOFENAC SODIUM
     Indication: Product used for unknown indication
  2. VOLTAREN [Suspect]
     Active Substance: DICLOFENAC SODIUM
  3. VOLTAREN [Suspect]
     Active Substance: DICLOFENAC SODIUM
  4. VOLTAREN [Suspect]
     Active Substance: DICLOFENAC SODIUM
  5. VOLTAREN [Suspect]
     Active Substance: DICLOFENAC SODIUM
  6. VOLTAREN [Suspect]
     Active Substance: DICLOFENAC SODIUM
  7. VOLTAREN [Suspect]
     Active Substance: DICLOFENAC SODIUM
  8. HYDROCORTISONE [Suspect]
     Active Substance: HYDROCORTISONE
     Indication: Rheumatoid arthritis
  9. HYDROCORTISONE [Suspect]
     Active Substance: HYDROCORTISONE
  10. HYDROCORTISONE [Suspect]
     Active Substance: HYDROCORTISONE
     Route: 048
  11. HYDROCORTISONE [Suspect]
     Active Substance: HYDROCORTISONE
  12. HYDROCORTISONE [Suspect]
     Active Substance: HYDROCORTISONE
  13. HYDROCORTISONE [Suspect]
     Active Substance: HYDROCORTISONE
  14. HYDROCORTISONE [Suspect]
     Active Substance: HYDROCORTISONE
  15. HYDROCORTISONE [Suspect]
     Active Substance: HYDROCORTISONE
     Route: 048
  16. DICLOFENAC [Suspect]
     Active Substance: DICLOFENAC
     Indication: Product used for unknown indication
  17. DICLOFENAC [Suspect]
     Active Substance: DICLOFENAC
  18. DICLOFENAC [Suspect]
     Active Substance: DICLOFENAC
     Route: 048
  19. DICLOFENAC [Suspect]
     Active Substance: DICLOFENAC
     Route: 048
  20. DICLOFENAC [Suspect]
     Active Substance: DICLOFENAC
  21. DICLOFENAC [Suspect]
     Active Substance: DICLOFENAC
  22. DICLOFENAC [Suspect]
     Active Substance: DICLOFENAC
  23. DICLOFENAC [Suspect]
     Active Substance: DICLOFENAC
  24. DICLOFENAC [Suspect]
     Active Substance: DICLOFENAC
  25. DICLOFENAC [Suspect]
     Active Substance: DICLOFENAC
  26. DICLOFENAC [Suspect]
     Active Substance: DICLOFENAC
  27. DICLOFENAC [Suspect]
     Active Substance: DICLOFENAC
  28. DICLOFENAC [Suspect]
     Active Substance: DICLOFENAC
  29. DICLOFENAC [Suspect]
     Active Substance: DICLOFENAC
  30. DICLOFENAC [Suspect]
     Active Substance: DICLOFENAC
  31. DICLOFENAC [Suspect]
     Active Substance: DICLOFENAC
  32. DICLOFENAC [Suspect]
     Active Substance: DICLOFENAC
  33. DICLOFENAC [Suspect]
     Active Substance: DICLOFENAC
  34. DICLOFENAC [Suspect]
     Active Substance: DICLOFENAC
  35. DICLOFENAC [Suspect]
     Active Substance: DICLOFENAC
  36. DICLOFENAC [Suspect]
     Active Substance: DICLOFENAC
     Route: 048
  37. HYDROXYCHLOROQUINE SULFATE [Suspect]
     Active Substance: HYDROXYCHLOROQUINE SULFATE
     Indication: Rheumatoid arthritis
  38. HYDROXYCHLOROQUINE SULFATE [Suspect]
     Active Substance: HYDROXYCHLOROQUINE SULFATE
  39. HYDROXYCHLOROQUINE SULFATE [Suspect]
     Active Substance: HYDROXYCHLOROQUINE SULFATE
  40. HYDROXYCHLOROQUINE SULFATE [Suspect]
     Active Substance: HYDROXYCHLOROQUINE SULFATE
     Route: 058
  41. HYDROXYCHLOROQUINE SULFATE [Suspect]
     Active Substance: HYDROXYCHLOROQUINE SULFATE
  42. HYDROXYCHLOROQUINE SULFATE [Suspect]
     Active Substance: HYDROXYCHLOROQUINE SULFATE
     Route: 058
  43. HYDROXYCHLOROQUINE SULFATE [Suspect]
     Active Substance: HYDROXYCHLOROQUINE SULFATE
     Route: 058
  44. HYDROXYCHLOROQUINE SULFATE [Suspect]
     Active Substance: HYDROXYCHLOROQUINE SULFATE
     Route: 058
  45. HYDROXYCHLOROQUINE SULFATE [Suspect]
     Active Substance: HYDROXYCHLOROQUINE SULFATE
     Route: 058
  46. HYDROXYCHLOROQUINE SULFATE [Suspect]
     Active Substance: HYDROXYCHLOROQUINE SULFATE
     Route: 058
  47. CETIRIZINE HYDROCHLORIDE [Suspect]
     Active Substance: CETIRIZINE HYDROCHLORIDE
     Indication: Rheumatoid arthritis
  48. CETIRIZINE HYDROCHLORIDE [Suspect]
     Active Substance: CETIRIZINE HYDROCHLORIDE
     Indication: Urticaria
     Route: 048
  49. CETIRIZINE HYDROCHLORIDE [Suspect]
     Active Substance: CETIRIZINE HYDROCHLORIDE
  50. CETIRIZINE HYDROCHLORIDE [Suspect]
     Active Substance: CETIRIZINE HYDROCHLORIDE
  51. CETIRIZINE HYDROCHLORIDE [Suspect]
     Active Substance: CETIRIZINE HYDROCHLORIDE
     Route: 005
  52. CETIRIZINE HYDROCHLORIDE [Suspect]
     Active Substance: CETIRIZINE HYDROCHLORIDE
     Route: 016
  53. CETIRIZINE HYDROCHLORIDE\PSEUDOEPHEDRINE HYDROCHLORIDE [Suspect]
     Active Substance: CETIRIZINE HYDROCHLORIDE\PSEUDOEPHEDRINE HYDROCHLORIDE
     Indication: Rheumatoid arthritis
  54. CETIRIZINE HYDROCHLORIDE\PSEUDOEPHEDRINE HYDROCHLORIDE [Suspect]
     Active Substance: CETIRIZINE HYDROCHLORIDE\PSEUDOEPHEDRINE HYDROCHLORIDE
  55. CETIRIZINE HYDROCHLORIDE\PSEUDOEPHEDRINE HYDROCHLORIDE [Suspect]
     Active Substance: CETIRIZINE HYDROCHLORIDE\PSEUDOEPHEDRINE HYDROCHLORIDE
     Route: 048
  56. CETIRIZINE HYDROCHLORIDE\PSEUDOEPHEDRINE HYDROCHLORIDE [Suspect]
     Active Substance: CETIRIZINE HYDROCHLORIDE\PSEUDOEPHEDRINE HYDROCHLORIDE
  57. CETIRIZINE HYDROCHLORIDE\PSEUDOEPHEDRINE HYDROCHLORIDE [Suspect]
     Active Substance: CETIRIZINE HYDROCHLORIDE\PSEUDOEPHEDRINE HYDROCHLORIDE
     Route: 048
  58. CETIRIZINE HYDROCHLORIDE\PSEUDOEPHEDRINE HYDROCHLORIDE [Suspect]
     Active Substance: CETIRIZINE HYDROCHLORIDE\PSEUDOEPHEDRINE HYDROCHLORIDE
     Route: 048
  59. CETIRIZINE HYDROCHLORIDE\PSEUDOEPHEDRINE HYDROCHLORIDE [Suspect]
     Active Substance: CETIRIZINE HYDROCHLORIDE\PSEUDOEPHEDRINE HYDROCHLORIDE
     Route: 048
  60. DICLOFENAC SODIUM [Suspect]
     Active Substance: DICLOFENAC SODIUM
     Indication: Product used for unknown indication
  61. MINOCYCLINE HYDROCHLORIDE [Suspect]
     Active Substance: MINOCYCLINE HYDROCHLORIDE
     Indication: Product used for unknown indication
  62. MINOCYCLINE HYDROCHLORIDE [Suspect]
     Active Substance: MINOCYCLINE HYDROCHLORIDE
  63. ARAVA [Suspect]
     Active Substance: LEFLUNOMIDE
     Indication: Rheumatoid arthritis
     Route: 048
  64. ARAVA [Suspect]
     Active Substance: LEFLUNOMIDE
     Route: 048
  65. ARAVA [Suspect]
     Active Substance: LEFLUNOMIDE
  66. ARAVA [Suspect]
     Active Substance: LEFLUNOMIDE
     Route: 048
  67. ARAVA [Suspect]
     Active Substance: LEFLUNOMIDE
     Route: 048
  68. ARAVA [Suspect]
     Active Substance: LEFLUNOMIDE
  69. ARAVA [Suspect]
     Active Substance: LEFLUNOMIDE
     Route: 048
  70. ARAVA [Suspect]
     Active Substance: LEFLUNOMIDE
     Route: 019
  71. ARAVA [Suspect]
     Active Substance: LEFLUNOMIDE
     Route: 005
  72. PLAQUENIL [Suspect]
     Active Substance: HYDROXYCHLOROQUINE SULFATE
     Indication: Rheumatoid arthritis
     Route: 048
  73. IBUPROFEN [Suspect]
     Active Substance: IBUPROFEN
     Indication: Product used for unknown indication
  74. NAPROXEN [Suspect]
     Active Substance: NAPROXEN
     Indication: Rheumatoid arthritis
  75. RITUXAN [Suspect]
     Active Substance: RITUXIMAB
     Indication: Rheumatoid arthritis
     Route: 042
  76. RITUXAN [Suspect]
     Active Substance: RITUXIMAB
  77. RITUXAN [Suspect]
     Active Substance: RITUXIMAB
  78. QUETIAPINE [Suspect]
     Active Substance: QUETIAPINE
     Indication: Rheumatoid arthritis
     Route: 003
  79. QUETIAPINE [Suspect]
     Active Substance: QUETIAPINE
     Route: 048
  80. CALCIUM [Suspect]
     Active Substance: CALCIUM
     Indication: Product used for unknown indication
  81. DILTIAZEM HYDROCHLORIDE [Suspect]
     Active Substance: DILTIAZEM HYDROCHLORIDE
     Indication: Product used for unknown indication
     Route: 042
  82. DILTIAZEM HYDROCHLORIDE [Suspect]
     Active Substance: DILTIAZEM HYDROCHLORIDE
  83. DILTIAZEM HYDROCHLORIDE [Suspect]
     Active Substance: DILTIAZEM HYDROCHLORIDE
  84. DILTIAZEM HYDROCHLORIDE [Suspect]
     Active Substance: DILTIAZEM HYDROCHLORIDE
  85. DILTIAZEM HYDROCHLORIDE [Suspect]
     Active Substance: DILTIAZEM HYDROCHLORIDE
     Route: 048
  86. HYDROCORTISONE SODIUM SUCCINATE [Suspect]
     Active Substance: HYDROCORTISONE SODIUM SUCCINATE
     Indication: Rheumatoid arthritis
     Route: 048
  87. HYDROCORTISONE SODIUM SUCCINATE [Suspect]
     Active Substance: HYDROCORTISONE SODIUM SUCCINATE
  88. HYDROCORTISONE SODIUM SUCCINATE [Suspect]
     Active Substance: HYDROCORTISONE SODIUM SUCCINATE
  89. PSEUDOEPHEDRINE [Suspect]
     Active Substance: PSEUDOEPHEDRINE
     Indication: Product used for unknown indication
  90. PSEUDOEPHEDRINE [Suspect]
     Active Substance: PSEUDOEPHEDRINE
  91. HYDROXYCHLOROQUINE [Suspect]
     Active Substance: HYDROXYCHLOROQUINE
     Indication: Rheumatoid arthritis
     Dosage: 200 MG, QD
  92. HYDROXYCHLOROQUINE [Suspect]
     Active Substance: HYDROXYCHLOROQUINE
     Dosage: 400 MG, QD
  93. HYDROXYCHLOROQUINE [Suspect]
     Active Substance: HYDROXYCHLOROQUINE
  94. HYDROXYCHLOROQUINE [Suspect]
     Active Substance: HYDROXYCHLOROQUINE
     Dosage: 400 MG, QD
     Route: 048
  95. HYDROXYCHLOROQUINE [Suspect]
     Active Substance: HYDROXYCHLOROQUINE
     Route: 048
  96. HYDROXYCHLOROQUINE [Suspect]
     Active Substance: HYDROXYCHLOROQUINE
  97. HYDROXYCHLOROQUINE [Suspect]
     Active Substance: HYDROXYCHLOROQUINE
  98. HYDROXYCHLOROQUINE [Suspect]
     Active Substance: HYDROXYCHLOROQUINE
  99. HYDROXYCHLOROQUINE [Suspect]
     Active Substance: HYDROXYCHLOROQUINE
     Route: 048
  100. HYDROXYCHLOROQUINE [Suspect]
     Active Substance: HYDROXYCHLOROQUINE
     Dosage: 400 MG, QD
  101. HYDROXYCHLOROQUINE [Suspect]
     Active Substance: HYDROXYCHLOROQUINE
     Dosage: 40 MG, QD
  102. HYDROXYCHLOROQUINE [Suspect]
     Active Substance: HYDROXYCHLOROQUINE
     Route: 058
  103. HYDROXYCHLOROQUINE [Suspect]
     Active Substance: HYDROXYCHLOROQUINE
     Route: 048
  104. HYDROXYCHLOROQUINE [Suspect]
     Active Substance: HYDROXYCHLOROQUINE
     Route: 048
  105. HYDROXYCHLOROQUINE [Suspect]
     Active Substance: HYDROXYCHLOROQUINE
     Dosage: 400 MG, QD
     Route: 048
  106. HYDROXYCHLOROQUINE [Suspect]
     Active Substance: HYDROXYCHLOROQUINE
     Route: 005
  107. HYDROXYCHLOROQUINE [Suspect]
     Active Substance: HYDROXYCHLOROQUINE
     Dosage: 400 MG, QD
  108. HYDROXYCHLOROQUINE [Suspect]
     Active Substance: HYDROXYCHLOROQUINE
  109. CORTISONE [Suspect]
     Active Substance: CORTISONE
     Indication: Rheumatoid arthritis
  110. CORTISONE [Suspect]
     Active Substance: CORTISONE
     Indication: Bursitis
  111. CORTISONE [Suspect]
     Active Substance: CORTISONE
  112. CORTISONE [Suspect]
     Active Substance: CORTISONE
  113. CORTISONE [Suspect]
     Active Substance: CORTISONE
  114. CORTISONE [Suspect]
     Active Substance: CORTISONE
  115. DOXYCYCLINE HYCLATE [Suspect]
     Active Substance: DOXYCYCLINE HYCLATE
     Indication: Product used for unknown indication
  116. DOXYCYCLINE HYCLATE [Suspect]
     Active Substance: DOXYCYCLINE HYCLATE
     Route: 048
  117. METHOTREXATE [Suspect]
     Active Substance: METHOTREXATE
     Indication: Rheumatoid arthritis
     Dosage: 20 MG, WE
     Route: 048
  118. METHOTREXATE [Suspect]
     Active Substance: METHOTREXATE
     Dosage: UNK, QD
     Route: 048
  119. METHOTREXATE [Suspect]
     Active Substance: METHOTREXATE
     Dosage: 25 MG, QD
  120. METHOTREXATE [Suspect]
     Active Substance: METHOTREXATE
  121. METHOTREXATE [Suspect]
     Active Substance: METHOTREXATE
     Route: 048
  122. METHOTREXATE [Suspect]
     Active Substance: METHOTREXATE
     Dosage: 2 G, WE
     Route: 048
  123. METHOTREXATE [Suspect]
     Active Substance: METHOTREXATE
     Route: 048
  124. METHOTREXATE [Suspect]
     Active Substance: METHOTREXATE
     Route: 048
  125. METHOTREXATE [Suspect]
     Active Substance: METHOTREXATE
     Dosage: 25 MG, WE
     Route: 048
  126. METHOTREXATE [Suspect]
     Active Substance: METHOTREXATE
  127. METHOTREXATE [Suspect]
     Active Substance: METHOTREXATE
     Route: 048
  128. METHOTREXATE [Suspect]
     Active Substance: METHOTREXATE
     Dosage: 15 MG, QD
     Route: 048
  129. METHOTREXATE [Suspect]
     Active Substance: METHOTREXATE
  130. METHOTREXATE [Suspect]
     Active Substance: METHOTREXATE
  131. METHOTREXATE [Suspect]
     Active Substance: METHOTREXATE
     Dosage: 25 MG, QD
     Route: 048
  132. METHOTREXATE [Suspect]
     Active Substance: METHOTREXATE
     Route: 048
  133. METHOTREXATE [Suspect]
     Active Substance: METHOTREXATE
  134. METHOTREXATE [Suspect]
     Active Substance: METHOTREXATE
     Dosage: 2 G, QD
     Route: 048
  135. METHOTREXATE [Suspect]
     Active Substance: METHOTREXATE
     Dosage: 25 MG, QD
  136. METHOTREXATE [Suspect]
     Active Substance: METHOTREXATE
     Dosage: 25 MG, QD
     Route: 048
  137. METHOTREXATE [Suspect]
     Active Substance: METHOTREXATE
     Dosage: 20 MG, QD
     Route: 048
  138. METHOTREXATE [Suspect]
     Active Substance: METHOTREXATE
     Route: 048
  139. METHOTREXATE [Suspect]
     Active Substance: METHOTREXATE
  140. METHOTREXATE [Suspect]
     Active Substance: METHOTREXATE
     Dosage: 2 DF, QD
     Route: 048
  141. METHOTREXATE [Suspect]
     Active Substance: METHOTREXATE
     Route: 048
  142. METHOTREXATE [Suspect]
     Active Substance: METHOTREXATE
     Dosage: 25 MG, WE
     Route: 048
  143. METHOTREXATE [Suspect]
     Active Substance: METHOTREXATE
     Dosage: 25 MG, QD
  144. METHOTREXATE [Suspect]
     Active Substance: METHOTREXATE
     Route: 048
  145. METHOTREXATE [Suspect]
     Active Substance: METHOTREXATE
     Dosage: 500 MG, BID
  146. METHOTREXATE [Suspect]
     Active Substance: METHOTREXATE
     Route: 048
  147. METHOTREXATE [Suspect]
     Active Substance: METHOTREXATE
     Route: 048
  148. METHOTREXATE [Suspect]
     Active Substance: METHOTREXATE
     Route: 048
  149. METHOTREXATE [Suspect]
     Active Substance: METHOTREXATE
  150. METHOTREXATE [Suspect]
     Active Substance: METHOTREXATE
     Route: 048
  151. METHOTREXATE [Suspect]
     Active Substance: METHOTREXATE
     Route: 048
  152. METHOTREXATE [Suspect]
     Active Substance: METHOTREXATE
  153. METHOTREXATE [Suspect]
     Active Substance: METHOTREXATE
     Route: 048
  154. METHOTREXATE [Suspect]
     Active Substance: METHOTREXATE
  155. METHOTREXATE [Suspect]
     Active Substance: METHOTREXATE
  156. METHOTREXATE [Suspect]
     Active Substance: METHOTREXATE
  157. METHOTREXATE [Suspect]
     Active Substance: METHOTREXATE
  158. METHOTREXATE [Suspect]
     Active Substance: METHOTREXATE
  159. METHOTREXATE [Suspect]
     Active Substance: METHOTREXATE
  160. METHOTREXATE [Suspect]
     Active Substance: METHOTREXATE
     Route: 048
  161. METHOTREXATE [Suspect]
     Active Substance: METHOTREXATE
     Route: 048
  162. METHOTREXATE [Suspect]
     Active Substance: METHOTREXATE
     Route: 048
  163. METHOTREXATE [Suspect]
     Active Substance: METHOTREXATE
  164. METHOTREXATE [Suspect]
     Active Substance: METHOTREXATE
  165. RAMIPRIL [Suspect]
     Active Substance: RAMIPRIL
     Indication: Product used for unknown indication
  166. FLUMETHASONE PIVALATE [Suspect]
     Active Substance: FLUMETHASONE PIVALATE
     Indication: Rheumatoid arthritis
  167. FLUMETHASONE PIVALATE [Suspect]
     Active Substance: FLUMETHASONE PIVALATE
     Route: 058
  168. FLUMETHASONE PIVALATE [Suspect]
     Active Substance: FLUMETHASONE PIVALATE
  169. FLUMETHASONE PIVALATE [Suspect]
     Active Substance: FLUMETHASONE PIVALATE
  170. FLUMETHASONE PIVALATE [Suspect]
     Active Substance: FLUMETHASONE PIVALATE
     Route: 058
  171. FLUMETHASONE PIVALATE [Suspect]
     Active Substance: FLUMETHASONE PIVALATE
     Route: 058
  172. ALENDRONIC ACID [Suspect]
     Active Substance: ALENDRONIC ACID
     Indication: Rheumatoid arthritis
     Route: 048
  173. ALENDRONIC ACID [Suspect]
     Active Substance: ALENDRONIC ACID
     Route: 048
  174. ALENDRONIC ACID [Suspect]
     Active Substance: ALENDRONIC ACID
  175. ALENDRONIC ACID [Suspect]
     Active Substance: ALENDRONIC ACID
  176. ALENDRONIC ACID [Suspect]
     Active Substance: ALENDRONIC ACID
     Route: 048
  177. ALENDRONIC ACID [Suspect]
     Active Substance: ALENDRONIC ACID
     Route: 016
  178. ALENDRONIC ACID [Suspect]
     Active Substance: ALENDRONIC ACID
  179. ALENDRONIC ACID [Suspect]
     Active Substance: ALENDRONIC ACID
  180. PANTOPRAZOLE SODIUM [Suspect]
     Active Substance: PANTOPRAZOLE SODIUM
     Indication: Product used for unknown indication
     Route: 016
  181. PANTOPRAZOLE SODIUM [Suspect]
     Active Substance: PANTOPRAZOLE SODIUM
  182. PANTOPRAZOLE SODIUM [Suspect]
     Active Substance: PANTOPRAZOLE SODIUM
     Route: 016
  183. PANTOPRAZOLE SODIUM [Suspect]
     Active Substance: PANTOPRAZOLE SODIUM
  184. CELEBREX [Suspect]
     Active Substance: CELECOXIB
     Indication: Arthritis
     Dosage: 2 DF, QD
     Route: 048
  185. CELEBREX [Suspect]
     Active Substance: CELECOXIB
     Dosage: 1 DF, QD
     Route: 048
  186. TRIAMCINOLONE ACETONIDE [Suspect]
     Active Substance: TRIAMCINOLONE ACETONIDE
     Indication: Rheumatoid arthritis
     Route: 014
  187. TRIAMCINOLONE ACETONIDE [Suspect]
     Active Substance: TRIAMCINOLONE ACETONIDE
     Dosage: SUSPENSION INTRA- ARTICULAR
     Route: 058
  188. HYDROCORTISONE BUTYRATE [Suspect]
     Active Substance: HYDROCORTISONE BUTYRATE
     Indication: Rheumatoid arthritis
  189. HYDROCORTISONE BUTYRATE [Suspect]
     Active Substance: HYDROCORTISONE BUTYRATE
     Route: 048
  190. HYDROCORTISONE BUTYRATE [Suspect]
     Active Substance: HYDROCORTISONE BUTYRATE
  191. HYDROCORTISONE BUTYRATE [Suspect]
     Active Substance: HYDROCORTISONE BUTYRATE
  192. HYDROCORTISONE BUTYRATE [Suspect]
     Active Substance: HYDROCORTISONE BUTYRATE
     Route: 058
  193. ALENDRONATE SODIUM [Suspect]
     Active Substance: ALENDRONATE SODIUM
     Indication: Rheumatoid arthritis
  194. ALENDRONATE SODIUM [Suspect]
     Active Substance: ALENDRONATE SODIUM
     Route: 048
  195. CHLORHEXIDINE GLUCONATE [Suspect]
     Active Substance: CHLORHEXIDINE GLUCONATE
     Indication: Pemphigus
     Route: 048
  196. CHLORHEXIDINE GLUCONATE [Suspect]
     Active Substance: CHLORHEXIDINE GLUCONATE
     Indication: Product used for unknown indication
     Route: 048
  197. CHLORHEXIDINE GLUCONATE [Suspect]
     Active Substance: CHLORHEXIDINE GLUCONATE
     Route: 002
  198. CHLORHEXIDINE GLUCONATE [Suspect]
     Active Substance: CHLORHEXIDINE GLUCONATE
  199. CHLORHEXIDINE GLUCONATE [Suspect]
     Active Substance: CHLORHEXIDINE GLUCONATE
  200. CHLORHEXIDINE GLUCONATE [Suspect]
     Active Substance: CHLORHEXIDINE GLUCONATE
  201. CHLORHEXIDINE GLUCONATE [Suspect]
     Active Substance: CHLORHEXIDINE GLUCONATE
  202. VITAMIN D3 [Suspect]
     Active Substance: CHOLECALCIFEROL
     Indication: Rheumatoid arthritis
  203. NAPROXEN SODIUM [Suspect]
     Active Substance: NAPROXEN SODIUM
     Indication: Rheumatoid arthritis
     Dosage: 500 MG, BID
  204. NAPROXEN SODIUM [Suspect]
     Active Substance: NAPROXEN SODIUM
  205. NAPROXEN SODIUM [Suspect]
     Active Substance: NAPROXEN SODIUM
  206. ORENCIA [Suspect]
     Active Substance: ABATACEPT
     Indication: Psoriatic arthropathy
     Dosage: 120 MG, WE
  207. ORENCIA [Suspect]
     Active Substance: ABATACEPT
     Indication: Rheumatoid arthritis
     Route: 042
  208. ORENCIA [Suspect]
     Active Substance: ABATACEPT
     Route: 042
  209. ORENCIA [Suspect]
     Active Substance: ABATACEPT
     Dosage: 125 MG, WE
  210. ORENCIA [Suspect]
     Active Substance: ABATACEPT
  211. ORENCIA [Suspect]
     Active Substance: ABATACEPT
  212. ORENCIA [Suspect]
     Active Substance: ABATACEPT
     Dosage: 3 MG, BID
     Route: 048
  213. ORENCIA [Suspect]
     Active Substance: ABATACEPT
     Dosage: 18 MG, QD
  214. ORENCIA [Suspect]
     Active Substance: ABATACEPT
  215. ORENCIA [Suspect]
     Active Substance: ABATACEPT
     Dosage: 125 MG, WE
     Route: 042
  216. ORENCIA [Suspect]
     Active Substance: ABATACEPT
  217. ORENCIA [Suspect]
     Active Substance: ABATACEPT
  218. ORENCIA [Suspect]
     Active Substance: ABATACEPT
  219. ORENCIA [Suspect]
     Active Substance: ABATACEPT
     Route: 042
  220. ORENCIA [Suspect]
     Active Substance: ABATACEPT
  221. ORENCIA [Suspect]
     Active Substance: ABATACEPT
     Dosage: 17.857 MG, QD
     Route: 042
  222. ORENCIA [Suspect]
     Active Substance: ABATACEPT
  223. ORENCIA [Suspect]
     Active Substance: ABATACEPT
     Dosage: 125 MG, WE
  224. ORENCIA [Suspect]
     Active Substance: ABATACEPT
  225. ORENCIA [Suspect]
     Active Substance: ABATACEPT
  226. ORENCIA [Suspect]
     Active Substance: ABATACEPT
     Route: 042
  227. ORENCIA [Suspect]
     Active Substance: ABATACEPT
  228. ORENCIA [Suspect]
     Active Substance: ABATACEPT
  229. ORENCIA [Suspect]
     Active Substance: ABATACEPT
  230. ORENCIA [Suspect]
     Active Substance: ABATACEPT
     Dosage: 17.875 MG, QD
  231. ORENCIA [Suspect]
     Active Substance: ABATACEPT
  232. ORENCIA [Suspect]
     Active Substance: ABATACEPT
     Dosage: 17.857 MG, QD
  233. ORENCIA [Suspect]
     Active Substance: ABATACEPT
  234. FOLIC ACID [Suspect]
     Active Substance: FOLIC ACID
     Indication: Rheumatoid arthritis
     Route: 016
  235. FOLIC ACID [Suspect]
     Active Substance: FOLIC ACID
  236. FOLIC ACID [Suspect]
     Active Substance: FOLIC ACID
  237. FOLIC ACID [Suspect]
     Active Substance: FOLIC ACID
  238. FOLIC ACID [Suspect]
     Active Substance: FOLIC ACID
  239. FOLIC ACID [Suspect]
     Active Substance: FOLIC ACID
     Route: 048
  240. FOLIC ACID [Suspect]
     Active Substance: FOLIC ACID
     Dosage: 5 MG, QD
  241. FOLIC ACID [Suspect]
     Active Substance: FOLIC ACID
  242. FOLIC ACID [Suspect]
     Active Substance: FOLIC ACID
  243. FOLIC ACID [Suspect]
     Active Substance: FOLIC ACID
     Route: 048
  244. FOLIC ACID [Suspect]
     Active Substance: FOLIC ACID
  245. FOLIC ACID [Suspect]
     Active Substance: FOLIC ACID
  246. FOLIC ACID [Suspect]
     Active Substance: FOLIC ACID
     Route: 048
  247. FOLIC ACID [Suspect]
     Active Substance: FOLIC ACID
     Route: 048
  248. FOLIC ACID [Suspect]
     Active Substance: FOLIC ACID
  249. FOLIC ACID [Suspect]
     Active Substance: FOLIC ACID
  250. FOLIC ACID [Suspect]
     Active Substance: FOLIC ACID
  251. FOLIC ACID [Suspect]
     Active Substance: FOLIC ACID
  252. FOLIC ACID [Suspect]
     Active Substance: FOLIC ACID
     Route: 048
  253. FOLIC ACID [Suspect]
     Active Substance: FOLIC ACID
  254. FOLIC ACID [Suspect]
     Active Substance: FOLIC ACID
     Route: 048
  255. FOLIC ACID [Suspect]
     Active Substance: FOLIC ACID
     Dosage: 1 MG, QD
  256. FOLIC ACID [Suspect]
     Active Substance: FOLIC ACID
  257. FOLIC ACID [Suspect]
     Active Substance: FOLIC ACID
     Dosage: 1 MG, QD
  258. FOLIC ACID [Suspect]
     Active Substance: FOLIC ACID
     Route: 048
  259. FOLIC ACID [Suspect]
     Active Substance: FOLIC ACID
     Route: 048
  260. FOLIC ACID [Suspect]
     Active Substance: FOLIC ACID
     Route: 048
  261. FOLIC ACID [Suspect]
     Active Substance: FOLIC ACID
  262. FOLIC ACID [Suspect]
     Active Substance: FOLIC ACID
  263. FOLIC ACID [Suspect]
     Active Substance: FOLIC ACID
     Route: 048
  264. FOLIC ACID [Suspect]
     Active Substance: FOLIC ACID
     Route: 048
  265. FOLIC ACID [Suspect]
     Active Substance: FOLIC ACID
  266. FOLIC ACID [Suspect]
     Active Substance: FOLIC ACID
     Route: 058
  267. METHOTREXATE SODIUM [Suspect]
     Active Substance: METHOTREXATE SODIUM
     Indication: Rheumatoid arthritis
     Dosage: 25 MG, WE
     Route: 048
  268. METHOTREXATE SODIUM [Suspect]
     Active Substance: METHOTREXATE SODIUM
     Route: 048
  269. METHOTREXATE SODIUM [Suspect]
     Active Substance: METHOTREXATE SODIUM
     Route: 048
  270. METHOTREXATE SODIUM [Suspect]
     Active Substance: METHOTREXATE SODIUM
     Route: 058
  271. PSEUDOEPHEDRINE HYDROCHLORIDE [Suspect]
     Active Substance: PSEUDOEPHEDRINE HYDROCHLORIDE
     Indication: Rheumatoid arthritis
  272. PSEUDOEPHEDRINE HYDROCHLORIDE [Suspect]
     Active Substance: PSEUDOEPHEDRINE HYDROCHLORIDE
  273. PSEUDOEPHEDRINE HYDROCHLORIDE [Suspect]
     Active Substance: PSEUDOEPHEDRINE HYDROCHLORIDE
  274. FOSAMAX [Suspect]
     Active Substance: ALENDRONATE SODIUM
     Indication: Rheumatoid arthritis
     Route: 048
  275. FOSAMAX [Suspect]
     Active Substance: ALENDRONATE SODIUM
  276. FOSAMAX [Suspect]
     Active Substance: ALENDRONATE SODIUM
     Route: 048
  277. FOSAMAX [Suspect]
     Active Substance: ALENDRONATE SODIUM
     Route: 058
  278. PREDNISONE [Suspect]
     Active Substance: PREDNISONE
     Indication: Systemic lupus erythematosus
     Route: 048
  279. PREDNISONE [Suspect]
     Active Substance: PREDNISONE
     Indication: Condition aggravated
  280. PREDNISONE [Suspect]
     Active Substance: PREDNISONE
     Indication: Psoriatic arthropathy
  281. PREDNISONE [Suspect]
     Active Substance: PREDNISONE
     Indication: Synovitis
     Route: 048
  282. PREDNISONE [Suspect]
     Active Substance: PREDNISONE
     Indication: Pemphigus
     Route: 048
  283. PREDNISONE [Suspect]
     Active Substance: PREDNISONE
     Indication: Rheumatoid arthritis
     Route: 048
  284. PREDNISONE [Suspect]
     Active Substance: PREDNISONE
  285. PREDNISONE [Suspect]
     Active Substance: PREDNISONE
     Dosage: 7.5 MG, QD
     Route: 048
  286. PREDNISONE [Suspect]
     Active Substance: PREDNISONE
  287. PREDNISONE [Suspect]
     Active Substance: PREDNISONE
     Route: 042
  288. PREDNISONE [Suspect]
     Active Substance: PREDNISONE
  289. PREDNISONE [Suspect]
     Active Substance: PREDNISONE
     Route: 048
  290. INFLIXIMAB [Suspect]
     Active Substance: INFLIXIMAB
     Indication: Rheumatoid arthritis
     Route: 042
  291. INFLIXIMAB [Suspect]
     Active Substance: INFLIXIMAB
     Indication: Psoriatic arthropathy
     Route: 042
  292. INFLIXIMAB [Suspect]
     Active Substance: INFLIXIMAB
  293. INFLIXIMAB [Suspect]
     Active Substance: INFLIXIMAB
     Route: 042
  294. INFLIXIMAB [Suspect]
     Active Substance: INFLIXIMAB
  295. INFLIXIMAB [Suspect]
     Active Substance: INFLIXIMAB
     Route: 042
  296. INFLIXIMAB [Suspect]
     Active Substance: INFLIXIMAB
     Route: 016
  297. CIMZIA [Suspect]
     Active Substance: CERTOLIZUMAB PEGOL
     Indication: Psoriasis
     Route: 058
  298. CIMZIA [Suspect]
     Active Substance: CERTOLIZUMAB PEGOL
     Indication: Rheumatoid arthritis
  299. CIMZIA [Suspect]
     Active Substance: CERTOLIZUMAB PEGOL
     Indication: Psoriatic arthropathy
     Route: 005
  300. CIMZIA [Suspect]
     Active Substance: CERTOLIZUMAB PEGOL
     Indication: Product used for unknown indication
     Route: 042
  301. CIMZIA [Suspect]
     Active Substance: CERTOLIZUMAB PEGOL
     Route: 058
  302. CIMZIA [Suspect]
     Active Substance: CERTOLIZUMAB PEGOL
  303. CIMZIA [Suspect]
     Active Substance: CERTOLIZUMAB PEGOL
     Dosage: 400 MG, Q2W
     Route: 058
  304. CIMZIA [Suspect]
     Active Substance: CERTOLIZUMAB PEGOL
     Route: 058
  305. CIMZIA [Suspect]
     Active Substance: CERTOLIZUMAB PEGOL
     Dosage: 200 MG, Q2W
     Route: 058
  306. CIMZIA [Suspect]
     Active Substance: CERTOLIZUMAB PEGOL
     Route: 058
  307. CIMZIA [Suspect]
     Active Substance: CERTOLIZUMAB PEGOL
  308. CIMZIA [Suspect]
     Active Substance: CERTOLIZUMAB PEGOL
     Route: 058
  309. CIMZIA [Suspect]
     Active Substance: CERTOLIZUMAB PEGOL
     Route: 058
  310. CIMZIA [Suspect]
     Active Substance: CERTOLIZUMAB PEGOL
  311. CIMZIA [Suspect]
     Active Substance: CERTOLIZUMAB PEGOL
  312. ASACOL [Suspect]
     Active Substance: MESALAMINE
     Indication: Rheumatoid arthritis
  313. ASACOL [Suspect]
     Active Substance: MESALAMINE
     Indication: Product used for unknown indication
  314. STELARA [Suspect]
     Active Substance: USTEKINUMAB
     Indication: Rheumatoid arthritis
     Route: 042
  315. STELARA [Suspect]
     Active Substance: USTEKINUMAB
     Route: 058
  316. STELARA [Suspect]
     Active Substance: USTEKINUMAB
     Route: 058
  317. STELARA [Suspect]
     Active Substance: USTEKINUMAB
     Route: 058
  318. STELARA [Suspect]
     Active Substance: USTEKINUMAB
     Route: 042
  319. OTEZLA [Suspect]
     Active Substance: APREMILAST
     Indication: Urticaria
     Dosage: 3 MG, BID
  320. OTEZLA [Suspect]
     Active Substance: APREMILAST
     Dosage: 3 MG, BID
     Route: 048
  321. OTEZLA [Suspect]
     Active Substance: APREMILAST
     Route: 048
  322. OTEZLA [Suspect]
     Active Substance: APREMILAST
     Route: 048
  323. PHTHALYLSULFATHIAZOLE [Suspect]
     Active Substance: PHTHALYLSULFATHIAZOLE
     Indication: Rheumatoid arthritis
     Route: 042
  324. PHTHALYLSULFATHIAZOLE [Suspect]
     Active Substance: PHTHALYLSULFATHIAZOLE
     Indication: Pemphigus
     Route: 048
  325. PHTHALYLSULFATHIAZOLE [Suspect]
     Active Substance: PHTHALYLSULFATHIAZOLE
     Route: 016
  326. PHTHALYLSULFATHIAZOLE [Suspect]
     Active Substance: PHTHALYLSULFATHIAZOLE
  327. PHTHALYLSULFATHIAZOLE [Suspect]
     Active Substance: PHTHALYLSULFATHIAZOLE
     Dosage: 1000 MG, BID
  328. PHTHALYLSULFATHIAZOLE [Suspect]
     Active Substance: PHTHALYLSULFATHIAZOLE
     Route: 048
  329. PHTHALYLSULFATHIAZOLE [Suspect]
     Active Substance: PHTHALYLSULFATHIAZOLE
     Dosage: 1000 MG, BID
     Route: 048
  330. PHTHALYLSULFATHIAZOLE [Suspect]
     Active Substance: PHTHALYLSULFATHIAZOLE
     Route: 048
  331. PHTHALYLSULFATHIAZOLE [Suspect]
     Active Substance: PHTHALYLSULFATHIAZOLE
     Dosage: 2000 MG, QD
     Route: 048
  332. PHTHALYLSULFATHIAZOLE [Suspect]
     Active Substance: PHTHALYLSULFATHIAZOLE
  333. PHTHALYLSULFATHIAZOLE [Suspect]
     Active Substance: PHTHALYLSULFATHIAZOLE
     Route: 048
  334. PHTHALYLSULFATHIAZOLE [Suspect]
     Active Substance: PHTHALYLSULFATHIAZOLE
     Route: 042
  335. PHTHALYLSULFATHIAZOLE [Suspect]
     Active Substance: PHTHALYLSULFATHIAZOLE
     Route: 005
  336. PHTHALYLSULFATHIAZOLE [Suspect]
     Active Substance: PHTHALYLSULFATHIAZOLE
     Route: 058
  337. PHTHALYLSULFATHIAZOLE [Suspect]
     Active Substance: PHTHALYLSULFATHIAZOLE
     Route: 058
  338. SULFASALAZINE [Suspect]
     Active Substance: SULFASALAZINE
     Indication: Rheumatoid arthritis
     Route: 048
  339. SULFASALAZINE [Suspect]
     Active Substance: SULFASALAZINE
     Dosage: 1 G, QD
  340. SULFASALAZINE [Suspect]
     Active Substance: SULFASALAZINE
     Dosage: UNK, QD
  341. SULFASALAZINE [Suspect]
     Active Substance: SULFASALAZINE
     Dosage: 500 MG, BID
     Route: 048
  342. SULFASALAZINE [Suspect]
     Active Substance: SULFASALAZINE
  343. SULFASALAZINE [Suspect]
     Active Substance: SULFASALAZINE
     Route: 048
  344. SULFASALAZINE [Suspect]
     Active Substance: SULFASALAZINE
     Dosage: 1 G, QD
  345. SULFASALAZINE [Suspect]
     Active Substance: SULFASALAZINE
     Dosage: 1000 MG, BID
     Route: 048
  346. SULFASALAZINE [Suspect]
     Active Substance: SULFASALAZINE
     Dosage: 4000 MG, QD
     Route: 048
  347. SULFASALAZINE [Suspect]
     Active Substance: SULFASALAZINE
     Dosage: 1 G, BID
  348. SULFASALAZINE [Suspect]
     Active Substance: SULFASALAZINE
     Dosage: 500 MG, QD
     Route: 048
  349. SULFASALAZINE [Suspect]
     Active Substance: SULFASALAZINE
     Route: 048
  350. SULFASALAZINE [Suspect]
     Active Substance: SULFASALAZINE
     Dosage: 1 G, BID
  351. SULFASALAZINE [Suspect]
     Active Substance: SULFASALAZINE
     Route: 048
  352. SULFASALAZINE [Suspect]
     Active Substance: SULFASALAZINE
     Dosage: 1 G, BID
     Route: 048
  353. SULFASALAZINE [Suspect]
     Active Substance: SULFASALAZINE
     Route: 058
  354. SULFASALAZINE [Suspect]
     Active Substance: SULFASALAZINE
     Route: 048
  355. SULFASALAZINE [Suspect]
     Active Substance: SULFASALAZINE
     Route: 048
  356. SULFASALAZINE [Suspect]
     Active Substance: SULFASALAZINE
  357. SULFASALAZINE [Suspect]
     Active Substance: SULFASALAZINE
     Route: 048
  358. SULFASALAZINE [Suspect]
     Active Substance: SULFASALAZINE
     Dosage: 1 G, BID
  359. SULFASALAZINE [Suspect]
     Active Substance: SULFASALAZINE
     Dosage: 1000 MG, QD
     Route: 048
  360. SULFASALAZINE [Suspect]
     Active Substance: SULFASALAZINE
     Route: 048
  361. SULFASALAZINE [Suspect]
     Active Substance: SULFASALAZINE
  362. SULFASALAZINE [Suspect]
     Active Substance: SULFASALAZINE
     Dosage: UNK, QD
  363. SULFASALAZINE [Suspect]
     Active Substance: SULFASALAZINE
     Dosage: 1000 MG, QD
     Route: 048
  364. SULFASALAZINE [Suspect]
     Active Substance: SULFASALAZINE
  365. SULFASALAZINE [Suspect]
     Active Substance: SULFASALAZINE
     Route: 058
  366. SULFASALAZINE [Suspect]
     Active Substance: SULFASALAZINE
     Route: 048
  367. SULFASALAZINE [Suspect]
     Active Substance: SULFASALAZINE
     Route: 048
  368. SULFASALAZINE [Suspect]
     Active Substance: SULFASALAZINE
     Route: 048
  369. SULFASALAZINE [Suspect]
     Active Substance: SULFASALAZINE
     Route: 048
  370. SULFASALAZINE [Suspect]
     Active Substance: SULFASALAZINE
     Dosage: 500 MG, QD
     Route: 048
  371. SULFASALAZINE [Suspect]
     Active Substance: SULFASALAZINE
     Dosage: 1 DF, QD
     Route: 048
  372. SULFASALAZINE [Suspect]
     Active Substance: SULFASALAZINE
     Dosage: 2000 MG, QD
     Route: 048
  373. SULFASALAZINE [Suspect]
     Active Substance: SULFASALAZINE
     Dosage: 1 G, QD
     Route: 048
  374. CELECOXIB [Suspect]
     Active Substance: CELECOXIB
     Indication: Product used for unknown indication
  375. CELECOXIB [Suspect]
     Active Substance: CELECOXIB
  376. CELECOXIB [Suspect]
     Active Substance: CELECOXIB
     Dosage: 1 DF, QD
  377. HUMIRA [Suspect]
     Active Substance: ADALIMUMAB
     Indication: Psoriatic arthropathy
  378. HUMIRA [Suspect]
     Active Substance: ADALIMUMAB
     Indication: Rheumatoid arthritis
  379. HUMIRA [Suspect]
     Active Substance: ADALIMUMAB
  380. HUMIRA [Suspect]
     Active Substance: ADALIMUMAB
  381. HUMIRA [Suspect]
     Active Substance: ADALIMUMAB
     Route: 057
  382. HUMIRA [Suspect]
     Active Substance: ADALIMUMAB
  383. HUMIRA [Suspect]
     Active Substance: ADALIMUMAB
  384. HUMIRA [Suspect]
     Active Substance: ADALIMUMAB
  385. HUMIRA [Suspect]
     Active Substance: ADALIMUMAB
  386. HUMIRA [Suspect]
     Active Substance: ADALIMUMAB
  387. HUMIRA [Suspect]
     Active Substance: ADALIMUMAB
  388. LEFLUNOMIDE [Suspect]
     Active Substance: LEFLUNOMIDE
     Indication: Rheumatoid arthritis
     Route: 048
  389. LEFLUNOMIDE [Suspect]
     Active Substance: LEFLUNOMIDE
     Route: 048
  390. LEFLUNOMIDE [Suspect]
     Active Substance: LEFLUNOMIDE
  391. LEFLUNOMIDE [Suspect]
     Active Substance: LEFLUNOMIDE
     Route: 048
  392. ACETAMINOPHEN [Suspect]
     Active Substance: ACETAMINOPHEN
     Indication: Rheumatoid arthritis
  393. ACETAMINOPHEN [Suspect]
     Active Substance: ACETAMINOPHEN
     Indication: Pain
  394. ACETAMINOPHEN [Suspect]
     Active Substance: ACETAMINOPHEN
     Indication: Pyrexia
  395. ACETAMINOPHEN [Suspect]
     Active Substance: ACETAMINOPHEN
  396. ACETAMINOPHEN [Suspect]
     Active Substance: ACETAMINOPHEN
  397. ALENDRONATE SODIUM [Suspect]
     Active Substance: ALENDRONATE SODIUM
     Indication: Rheumatoid arthritis
  398. ALENDRONATE SODIUM [Suspect]
     Active Substance: ALENDRONATE SODIUM
     Route: 048
  399. DOXYCYCLINE [Suspect]
     Active Substance: DOXYCYCLINE
     Indication: Product used for unknown indication
  400. PREDNISONE [Suspect]
     Active Substance: PREDNISONE
     Indication: Rheumatoid arthritis
  401. PREDNISONE [Suspect]
     Active Substance: PREDNISONE
     Indication: Pemphigus
  402. PREDNISONE [Suspect]
     Active Substance: PREDNISONE
     Indication: Bursitis
     Route: 048
  403. PREDNISONE [Suspect]
     Active Substance: PREDNISONE
     Indication: Synovitis
     Route: 048
  404. PREDNISONE [Suspect]
     Active Substance: PREDNISONE
     Indication: Psoriatic arthropathy
     Route: 048
  405. PREDNISONE [Suspect]
     Active Substance: PREDNISONE
     Indication: Systemic lupus erythematosus
     Route: 048
  406. PREDNISONE [Suspect]
     Active Substance: PREDNISONE
     Indication: Inflammation
  407. PREDNISONE [Suspect]
     Active Substance: PREDNISONE
  408. COSENTYX [Concomitant]
     Active Substance: SECUKINUMAB
     Indication: Rheumatoid arthritis
  409. COSENTYX [Concomitant]
     Active Substance: SECUKINUMAB
  410. COSENTYX [Concomitant]
     Active Substance: SECUKINUMAB
     Route: 005
  411. OXYCODONE HYDROCHLORIDE [Suspect]
     Active Substance: OXYCODONE HYDROCHLORIDE
     Indication: Product used for unknown indication
  412. OXYCODONE HYDROCHLORIDE [Suspect]
     Active Substance: OXYCODONE HYDROCHLORIDE
     Indication: Psoriatic arthropathy
  413. OXYCODONE HYDROCHLORIDE [Suspect]
     Active Substance: OXYCODONE HYDROCHLORIDE
  414. OXYCODONE HYDROCHLORIDE [Suspect]
     Active Substance: OXYCODONE HYDROCHLORIDE
  415. OXYCODONE HYDROCHLORIDE [Suspect]
     Active Substance: OXYCODONE HYDROCHLORIDE
     Route: 042
  416. OXYCODONE HYDROCHLORIDE [Suspect]
     Active Substance: OXYCODONE HYDROCHLORIDE
  417. OXYCODONE HYDROCHLORIDE [Suspect]
     Active Substance: OXYCODONE HYDROCHLORIDE
     Route: 048
  418. OXYCODONE HYDROCHLORIDE [Suspect]
     Active Substance: OXYCODONE HYDROCHLORIDE
     Route: 048
  419. OXYCODONE HYDROCHLORIDE [Suspect]
     Active Substance: OXYCODONE HYDROCHLORIDE
     Route: 048
  420. OXYCODONE HYDROCHLORIDE [Suspect]
     Active Substance: OXYCODONE HYDROCHLORIDE
     Route: 048
  421. OXYCODONE HYDROCHLORIDE [Suspect]
     Active Substance: OXYCODONE HYDROCHLORIDE
  422. DICLOFENAC SODIUM [Suspect]
     Active Substance: DICLOFENAC SODIUM
     Indication: Product used for unknown indication
  423. DICLOFENAC SODIUM [Suspect]
     Active Substance: DICLOFENAC SODIUM
  424. DICLOFENAC SODIUM [Suspect]
     Active Substance: DICLOFENAC SODIUM
  425. DICLOFENAC SODIUM [Suspect]
     Active Substance: DICLOFENAC SODIUM
     Route: 048
  426. DICLOFENAC SODIUM [Suspect]
     Active Substance: DICLOFENAC SODIUM
  427. OXYCODONE TEREPHTHALATE [Suspect]
     Active Substance: OXYCODONE TEREPHTHALATE
     Indication: Product used for unknown indication
     Route: 016
  428. OXYCODONE TEREPHTHALATE [Suspect]
     Active Substance: OXYCODONE TEREPHTHALATE
  429. ERELZI [Concomitant]
     Active Substance: ETANERCEPT-SZZS
     Indication: Rheumatoid arthritis
     Dosage: 1 EVERY 1 WEEKS
     Route: 058
  430. ERELZI [Concomitant]
     Active Substance: ETANERCEPT-SZZS
     Indication: Psoriatic arthropathy
  431. ERELZI [Concomitant]
     Active Substance: ETANERCEPT-SZZS
     Dosage: 1 EVERY 1 WEEKS
     Route: 058
  432. ERELZI [Concomitant]
     Active Substance: ETANERCEPT-SZZS
     Route: 058
  433. ERELZI [Concomitant]
     Active Substance: ETANERCEPT-SZZS
  434. ERELZI [Concomitant]
     Active Substance: ETANERCEPT-SZZS
     Dosage: 1 EVERY 1 WEEKS
     Route: 058
  435. ERELZI [Concomitant]
     Active Substance: ETANERCEPT-SZZS
     Route: 058
  436. ERELZI [Concomitant]
     Active Substance: ETANERCEPT-SZZS
     Route: 058
  437. ABATACEPT [Suspect]
     Active Substance: ABATACEPT
     Indication: Rheumatoid arthritis
     Route: 042
  438. CETIRIZINE HYDROCHLORIDE [Suspect]
     Active Substance: CETIRIZINE HYDROCHLORIDE
     Indication: Rheumatoid arthritis
  439. CETIRIZINE HYDROCHLORIDE [Suspect]
     Active Substance: CETIRIZINE HYDROCHLORIDE
  440. CETIRIZINE HYDROCHLORIDE [Suspect]
     Active Substance: CETIRIZINE HYDROCHLORIDE
     Dosage: UNK, QD
  441. CETIRIZINE HYDROCHLORIDE [Suspect]
     Active Substance: CETIRIZINE HYDROCHLORIDE
  442. CETIRIZINE HYDROCHLORIDE [Suspect]
     Active Substance: CETIRIZINE HYDROCHLORIDE
  443. CETIRIZINE HYDROCHLORIDE [Suspect]
     Active Substance: CETIRIZINE HYDROCHLORIDE
  444. CETIRIZINE HYDROCHLORIDE [Suspect]
     Active Substance: CETIRIZINE HYDROCHLORIDE
  445. CETIRIZINE HYDROCHLORIDE [Suspect]
     Active Substance: CETIRIZINE HYDROCHLORIDE
     Dosage: 10 MG, QD
  446. CETIRIZINE HYDROCHLORIDE [Suspect]
     Active Substance: CETIRIZINE HYDROCHLORIDE
  447. CETIRIZINE HYDROCHLORIDE [Suspect]
     Active Substance: CETIRIZINE HYDROCHLORIDE
     Route: 048
  448. CETIRIZINE HYDROCHLORIDE [Suspect]
     Active Substance: CETIRIZINE HYDROCHLORIDE
  449. CETIRIZINE HYDROCHLORIDE [Suspect]
     Active Substance: CETIRIZINE HYDROCHLORIDE
  450. CETIRIZINE HYDROCHLORIDE [Suspect]
     Active Substance: CETIRIZINE HYDROCHLORIDE
     Dosage: 10 MG, QD
  451. CETIRIZINE HYDROCHLORIDE [Suspect]
     Active Substance: CETIRIZINE HYDROCHLORIDE
  452. CETIRIZINE HYDROCHLORIDE [Suspect]
     Active Substance: CETIRIZINE HYDROCHLORIDE
  453. CETIRIZINE HYDROCHLORIDE [Suspect]
     Active Substance: CETIRIZINE HYDROCHLORIDE
  454. CETIRIZINE HYDROCHLORIDE [Suspect]
     Active Substance: CETIRIZINE HYDROCHLORIDE
     Route: 048
  455. CETIRIZINE HYDROCHLORIDE [Suspect]
     Active Substance: CETIRIZINE HYDROCHLORIDE
     Route: 048
  456. CETIRIZINE HYDROCHLORIDE [Suspect]
     Active Substance: CETIRIZINE HYDROCHLORIDE
     Dosage: 10 MG, QD
     Route: 048
  457. CETIRIZINE HYDROCHLORIDE [Suspect]
     Active Substance: CETIRIZINE HYDROCHLORIDE
  458. CETIRIZINE HYDROCHLORIDE [Suspect]
     Active Substance: CETIRIZINE HYDROCHLORIDE
     Dosage: 10 MG, QD
     Route: 048
  459. CETIRIZINE HYDROCHLORIDE [Suspect]
     Active Substance: CETIRIZINE HYDROCHLORIDE
     Dosage: 10 MG, QD
  460. CETIRIZINE HYDROCHLORIDE [Suspect]
     Active Substance: CETIRIZINE HYDROCHLORIDE
  461. CETIRIZINE HYDROCHLORIDE [Suspect]
     Active Substance: CETIRIZINE HYDROCHLORIDE
  462. CETIRIZINE HYDROCHLORIDE [Suspect]
     Active Substance: CETIRIZINE HYDROCHLORIDE
  463. CETIRIZINE HYDROCHLORIDE [Suspect]
     Active Substance: CETIRIZINE HYDROCHLORIDE
  464. CETIRIZINE HYDROCHLORIDE [Suspect]
     Active Substance: CETIRIZINE HYDROCHLORIDE
  465. CETIRIZINE HYDROCHLORIDE [Suspect]
     Active Substance: CETIRIZINE HYDROCHLORIDE
  466. CETIRIZINE HYDROCHLORIDE [Suspect]
     Active Substance: CETIRIZINE HYDROCHLORIDE
  467. CHLORAPREP [Suspect]
     Active Substance: CHLORHEXIDINE GLUCONATE\ISOPROPYL ALCOHOL
     Indication: Synovitis
  468. CHLORAPREP [Suspect]
     Active Substance: CHLORHEXIDINE GLUCONATE\ISOPROPYL ALCOHOL
     Indication: Product used for unknown indication
  469. CHLORAPREP [Suspect]
     Active Substance: CHLORHEXIDINE GLUCONATE\ISOPROPYL ALCOHOL
     Route: 048
  470. CHLORAPREP [Suspect]
     Active Substance: CHLORHEXIDINE GLUCONATE\ISOPROPYL ALCOHOL
  471. SULFAMETHOXAZOLE AND TRIMETHOPRIM [Suspect]
     Active Substance: SULFAMETHOXAZOLE\TRIMETHOPRIM
     Indication: Product used for unknown indication
  472. SULFAMETHOXAZOLE AND TRIMETHOPRIM [Suspect]
     Active Substance: SULFAMETHOXAZOLE\TRIMETHOPRIM
     Indication: Psoriatic arthropathy
  473. SULFAMETHOXAZOLE AND TRIMETHOPRIM [Suspect]
     Active Substance: SULFAMETHOXAZOLE\TRIMETHOPRIM
  474. HYDROCORTISONE [Suspect]
     Active Substance: HYDROCORTISONE
     Indication: Rheumatoid arthritis
  475. HYDROCORTISONE [Suspect]
     Active Substance: HYDROCORTISONE
     Route: 003
  476. HYDROCORTISONE [Suspect]
     Active Substance: HYDROCORTISONE
     Route: 048
  477. HYDROCORTISONE [Suspect]
     Active Substance: HYDROCORTISONE
  478. HYDROCORTISONE [Suspect]
     Active Substance: HYDROCORTISONE
  479. HYDROCORTISONE [Suspect]
     Active Substance: HYDROCORTISONE
  480. HYDROCORTISONE [Suspect]
     Active Substance: HYDROCORTISONE
  481. HYDROCORTISONE [Suspect]
     Active Substance: HYDROCORTISONE
     Route: 048
  482. CORTISONE ACETATE [Suspect]
     Active Substance: CORTISONE ACETATE
     Indication: Rheumatoid arthritis
  483. CORTISONE ACETATE [Suspect]
     Active Substance: CORTISONE ACETATE
     Indication: Product used for unknown indication
  484. CORTISONE ACETATE [Suspect]
     Active Substance: CORTISONE ACETATE
     Indication: Arthritis
     Route: 048
  485. CORTISONE ACETATE [Suspect]
     Active Substance: CORTISONE ACETATE
  486. CORTISONE ACETATE [Suspect]
     Active Substance: CORTISONE ACETATE
     Route: 048
  487. CORTISONE ACETATE [Suspect]
     Active Substance: CORTISONE ACETATE
     Route: 048
  488. CORTISONE ACETATE [Suspect]
     Active Substance: CORTISONE ACETATE
  489. CORTISONE ACETATE [Suspect]
     Active Substance: CORTISONE ACETATE
  490. CORTISONE ACETATE [Suspect]
     Active Substance: CORTISONE ACETATE
  491. APREPITANT [Suspect]
     Active Substance: APREPITANT
     Indication: Product used for unknown indication
     Route: 048
  492. APREPITANT [Suspect]
     Active Substance: APREPITANT
     Route: 042
  493. APREPITANT [Suspect]
     Active Substance: APREPITANT
  494. APREPITANT [Suspect]
     Active Substance: APREPITANT
  495. CHLORHEXIDINE [Suspect]
     Active Substance: CHLORHEXIDINE
     Indication: Psoriatic arthropathy
  496. CHLORHEXIDINE [Suspect]
     Active Substance: CHLORHEXIDINE
     Indication: Product used for unknown indication
     Route: 002
  497. CHLORHEXIDINE [Suspect]
     Active Substance: CHLORHEXIDINE
  498. CHLORHEXIDINE [Suspect]
     Active Substance: CHLORHEXIDINE
     Route: 048
  499. CHLORHEXIDINE [Suspect]
     Active Substance: CHLORHEXIDINE
     Route: 016
  500. APREMILAST [Suspect]
     Active Substance: APREMILAST
     Indication: Product used for unknown indication
  501. APREMILAST [Suspect]
     Active Substance: APREMILAST
  502. APREMILAST [Suspect]
     Active Substance: APREMILAST
     Route: 048
  503. APREMILAST [Suspect]
     Active Substance: APREMILAST
  504. VITAMIN C [Suspect]
     Active Substance: ASCORBIC ACID
     Indication: Product used for unknown indication
     Route: 016
  505. VITAMIN C [Suspect]
     Active Substance: ASCORBIC ACID
  506. VITAMIN C [Suspect]
     Active Substance: ASCORBIC ACID
  507. VITAMIN C [Suspect]
     Active Substance: ASCORBIC ACID
  508. VITAMIN C [Suspect]
     Active Substance: ASCORBIC ACID
  509. VITAMIN C [Suspect]
     Active Substance: ASCORBIC ACID
  510. CETIRIZINE HYDROCHLORIDE [Suspect]
     Active Substance: CETIRIZINE HYDROCHLORIDE
     Indication: Rheumatoid arthritis
     Dosage: 10 MG, QD
     Route: 048
  511. CETIRIZINE HYDROCHLORIDE [Suspect]
     Active Substance: CETIRIZINE HYDROCHLORIDE
     Indication: Systemic lupus erythematosus
  512. CETIRIZINE HYDROCHLORIDE [Suspect]
     Active Substance: CETIRIZINE HYDROCHLORIDE
     Indication: Psoriatic arthropathy
     Route: 048
  513. CETIRIZINE HYDROCHLORIDE [Suspect]
     Active Substance: CETIRIZINE HYDROCHLORIDE
  514. CETIRIZINE HYDROCHLORIDE [Suspect]
     Active Substance: CETIRIZINE HYDROCHLORIDE
     Route: 048
  515. CALCIUM CARBONATE\CHOLECALCIFEROL [Suspect]
     Active Substance: CALCIUM CARBONATE\CHOLECALCIFEROL
     Indication: Product used for unknown indication
  516. CALCIUM CARBONATE\CHOLECALCIFEROL [Suspect]
     Active Substance: CALCIUM CARBONATE\CHOLECALCIFEROL
  517. CALCIUM CARBONATE\CHOLECALCIFEROL [Suspect]
     Active Substance: CALCIUM CARBONATE\CHOLECALCIFEROL
  518. CETIRIZINE HYDROCHLORIDE [Suspect]
     Active Substance: CETIRIZINE HYDROCHLORIDE
     Indication: Product used for unknown indication
  519. CETIRIZINE HYDROCHLORIDE [Suspect]
     Active Substance: CETIRIZINE HYDROCHLORIDE
  520. CETIRIZINE HYDROCHLORIDE [Suspect]
     Active Substance: CETIRIZINE HYDROCHLORIDE
  521. CETIRIZINE HYDROCHLORIDE [Suspect]
     Active Substance: CETIRIZINE HYDROCHLORIDE
  522. CETIRIZINE HYDROCHLORIDE [Suspect]
     Active Substance: CETIRIZINE HYDROCHLORIDE
  523. CETIRIZINE HYDROCHLORIDE [Suspect]
     Active Substance: CETIRIZINE HYDROCHLORIDE
  524. CETIRIZINE HYDROCHLORIDE [Suspect]
     Active Substance: CETIRIZINE HYDROCHLORIDE
     Route: 048
  525. CETIRIZINE HYDROCHLORIDE [Suspect]
     Active Substance: CETIRIZINE HYDROCHLORIDE
     Route: 048
  526. CETIRIZINE HYDROCHLORIDE [Suspect]
     Active Substance: CETIRIZINE HYDROCHLORIDE
     Route: 048
  527. CETIRIZINE HYDROCHLORIDE [Suspect]
     Active Substance: CETIRIZINE HYDROCHLORIDE
  528. CETIRIZINE HYDROCHLORIDE [Suspect]
     Active Substance: CETIRIZINE HYDROCHLORIDE
     Route: 048
  529. CETIRIZINE HYDROCHLORIDE [Suspect]
     Active Substance: CETIRIZINE HYDROCHLORIDE
  530. CETIRIZINE HYDROCHLORIDE [Suspect]
     Active Substance: CETIRIZINE HYDROCHLORIDE
  531. CETIRIZINE HYDROCHLORIDE [Suspect]
     Active Substance: CETIRIZINE HYDROCHLORIDE
     Route: 048
  532. CETIRIZINE HYDROCHLORIDE [Suspect]
     Active Substance: CETIRIZINE HYDROCHLORIDE
  533. CETIRIZINE HYDROCHLORIDE [Suspect]
     Active Substance: CETIRIZINE HYDROCHLORIDE
  534. CETIRIZINE HYDROCHLORIDE [Suspect]
     Active Substance: CETIRIZINE HYDROCHLORIDE
  535. CETIRIZINE HYDROCHLORIDE [Suspect]
     Active Substance: CETIRIZINE HYDROCHLORIDE
  536. CETIRIZINE HYDROCHLORIDE [Suspect]
     Active Substance: CETIRIZINE HYDROCHLORIDE
  537. CETIRIZINE HYDROCHLORIDE [Suspect]
     Active Substance: CETIRIZINE HYDROCHLORIDE
  538. CETIRIZINE HYDROCHLORIDE [Suspect]
     Active Substance: CETIRIZINE HYDROCHLORIDE
  539. CETIRIZINE HYDROCHLORIDE [Suspect]
     Active Substance: CETIRIZINE HYDROCHLORIDE
  540. CETIRIZINE HYDROCHLORIDE [Suspect]
     Active Substance: CETIRIZINE HYDROCHLORIDE
  541. CETIRIZINE HYDROCHLORIDE [Suspect]
     Active Substance: CETIRIZINE HYDROCHLORIDE
  542. CETIRIZINE HYDROCHLORIDE [Suspect]
     Active Substance: CETIRIZINE HYDROCHLORIDE
  543. CETIRIZINE HYDROCHLORIDE [Suspect]
     Active Substance: CETIRIZINE HYDROCHLORIDE
  544. CETIRIZINE HYDROCHLORIDE [Suspect]
     Active Substance: CETIRIZINE HYDROCHLORIDE
  545. CETIRIZINE HYDROCHLORIDE [Suspect]
     Active Substance: CETIRIZINE HYDROCHLORIDE
     Route: 048
  546. HYDROXYCHLOROQUINE SULFATE [Suspect]
     Active Substance: HYDROXYCHLOROQUINE SULFATE
     Indication: Rheumatoid arthritis
     Route: 048
  547. HYDROXYCHLOROQUINE SULFATE [Suspect]
     Active Substance: HYDROXYCHLOROQUINE SULFATE
     Indication: Systemic lupus erythematosus
     Dosage: 40 MG, QD
  548. HYDROXYCHLOROQUINE SULFATE [Suspect]
     Active Substance: HYDROXYCHLOROQUINE SULFATE
     Indication: Product used for unknown indication
     Dosage: 4000 MG, QD
     Route: 058
  549. HYDROXYCHLOROQUINE SULFATE [Suspect]
     Active Substance: HYDROXYCHLOROQUINE SULFATE
     Dosage: 400 MG, QD
  550. HYDROXYCHLOROQUINE SULFATE [Suspect]
     Active Substance: HYDROXYCHLOROQUINE SULFATE
  551. HYDROXYCHLOROQUINE SULFATE [Suspect]
     Active Substance: HYDROXYCHLOROQUINE SULFATE
     Route: 048
  552. HYDROXYCHLOROQUINE SULFATE [Suspect]
     Active Substance: HYDROXYCHLOROQUINE SULFATE
  553. HYDROXYCHLOROQUINE SULFATE [Suspect]
     Active Substance: HYDROXYCHLOROQUINE SULFATE
     Route: 048
  554. HYDROXYCHLOROQUINE SULFATE [Suspect]
     Active Substance: HYDROXYCHLOROQUINE SULFATE
  555. HYDROXYCHLOROQUINE SULFATE [Suspect]
     Active Substance: HYDROXYCHLOROQUINE SULFATE
     Route: 048
  556. HYDROXYCHLOROQUINE SULFATE [Suspect]
     Active Substance: HYDROXYCHLOROQUINE SULFATE
     Dosage: 40 MG, QD
     Route: 048
  557. HYDROXYCHLOROQUINE SULFATE [Suspect]
     Active Substance: HYDROXYCHLOROQUINE SULFATE
     Dosage: 400 MG, QD
     Route: 048
  558. HYDROXYCHLOROQUINE SULFATE [Suspect]
     Active Substance: HYDROXYCHLOROQUINE SULFATE
     Dosage: 40 MG, QD
  559. HYDROXYCHLOROQUINE SULFATE [Suspect]
     Active Substance: HYDROXYCHLOROQUINE SULFATE
     Route: 048
  560. HYDROXYCHLOROQUINE SULFATE [Suspect]
     Active Substance: HYDROXYCHLOROQUINE SULFATE
  561. HYDROXYCHLOROQUINE SULFATE [Suspect]
     Active Substance: HYDROXYCHLOROQUINE SULFATE
     Route: 016
  562. HYDROXYCHLOROQUINE SULFATE [Suspect]
     Active Substance: HYDROXYCHLOROQUINE SULFATE
     Route: 048
  563. HYDROXYCHLOROQUINE SULFATE [Suspect]
     Active Substance: HYDROXYCHLOROQUINE SULFATE
     Dosage: 400 MG, QD
     Route: 048
  564. HYDROXYCHLOROQUINE SULFATE [Suspect]
     Active Substance: HYDROXYCHLOROQUINE SULFATE
  565. HYDROXYCHLOROQUINE SULFATE [Suspect]
     Active Substance: HYDROXYCHLOROQUINE SULFATE
  566. HYDROXYCHLOROQUINE SULFATE [Suspect]
     Active Substance: HYDROXYCHLOROQUINE SULFATE
     Dosage: 400 MG, QD
     Route: 048
  567. HYDROXYCHLOROQUINE SULFATE [Suspect]
     Active Substance: HYDROXYCHLOROQUINE SULFATE
     Route: 058
  568. HYDROXYCHLOROQUINE SULFATE [Suspect]
     Active Substance: HYDROXYCHLOROQUINE SULFATE
     Route: 048
  569. HYDROXYCHLOROQUINE SULFATE [Suspect]
     Active Substance: HYDROXYCHLOROQUINE SULFATE
     Route: 066
  570. HYDROXYCHLOROQUINE SULFATE [Suspect]
     Active Substance: HYDROXYCHLOROQUINE SULFATE
     Route: 058
  571. HYDROXYCHLOROQUINE SULFATE [Suspect]
     Active Substance: HYDROXYCHLOROQUINE SULFATE
     Dosage: 4000 MG, QD
     Route: 058
  572. HYDROXYCHLOROQUINE SULFATE [Suspect]
     Active Substance: HYDROXYCHLOROQUINE SULFATE
     Route: 058
  573. HYDROXYCHLOROQUINE SULFATE [Suspect]
     Active Substance: HYDROXYCHLOROQUINE SULFATE
     Dosage: 400 MG, QD
     Route: 048
  574. ENBREL [Suspect]
     Active Substance: ETANERCEPT
     Indication: Psoriatic arthropathy
     Dosage: 50 MG, WE
     Route: 058
  575. ENBREL [Suspect]
     Active Substance: ETANERCEPT
     Indication: Rheumatoid arthritis
  576. ENBREL [Suspect]
     Active Substance: ETANERCEPT
     Indication: Product used for unknown indication
     Route: 058
  577. ENBREL [Suspect]
     Active Substance: ETANERCEPT
     Indication: Psoriasis
     Dosage: 50 MG, Q2W
  578. ENBREL [Suspect]
     Active Substance: ETANERCEPT
  579. ENBREL [Suspect]
     Active Substance: ETANERCEPT
     Route: 058
  580. ENBREL [Suspect]
     Active Substance: ETANERCEPT
     Route: 058
  581. ENBREL [Suspect]
     Active Substance: ETANERCEPT
     Dosage: 50 MG, WE
     Route: 058
  582. ENBREL [Suspect]
     Active Substance: ETANERCEPT
     Route: 058
  583. ENBREL [Suspect]
     Active Substance: ETANERCEPT
     Route: 058
  584. ENBREL [Suspect]
     Active Substance: ETANERCEPT
     Route: 058
  585. ENBREL [Suspect]
     Active Substance: ETANERCEPT
     Dosage: 20 MG, QD
     Route: 058
  586. ENBREL [Suspect]
     Active Substance: ETANERCEPT
     Dosage: 20 MG, WE
     Route: 058
  587. ENBREL [Suspect]
     Active Substance: ETANERCEPT
     Route: 058
  588. ENBREL [Suspect]
     Active Substance: ETANERCEPT
     Dosage: 50 MG, WE
     Route: 058
  589. ENBREL [Suspect]
     Active Substance: ETANERCEPT
     Dosage: 20 MG, WE
     Route: 058
  590. PREGABALIN [Suspect]
     Active Substance: PREGABALIN
     Indication: Product used for unknown indication
  591. PERIOGARD [Suspect]
     Active Substance: CHLORHEXIDINE GLUCONATE
     Indication: Product used for unknown indication
     Route: 048
  592. PERIOGARD [Suspect]
     Active Substance: CHLORHEXIDINE GLUCONATE
     Route: 002
  593. PERIOGARD [Suspect]
     Active Substance: CHLORHEXIDINE GLUCONATE
     Dosage: UNK, QOD
  594. PERIOGARD [Suspect]
     Active Substance: CHLORHEXIDINE GLUCONATE
     Route: 016
  595. PERIOGARD [Suspect]
     Active Substance: CHLORHEXIDINE GLUCONATE
  596. TUMS ULTRA [Suspect]
     Active Substance: CALCIUM CARBONATE
     Indication: Product used for unknown indication
  597. TUMS ULTRA [Suspect]
     Active Substance: CALCIUM CARBONATE
  598. TUMS ULTRA [Suspect]
     Active Substance: CALCIUM CARBONATE
     Route: 048
  599. TUMS ULTRA [Suspect]
     Active Substance: CALCIUM CARBONATE
  600. RITUXIMAB [Suspect]
     Active Substance: RITUXIMAB
     Indication: Rheumatoid arthritis
     Route: 042
  601. RITUXIMAB [Suspect]
     Active Substance: RITUXIMAB
     Indication: Product used for unknown indication
     Route: 042
  602. RITUXIMAB [Suspect]
     Active Substance: RITUXIMAB
     Route: 042
  603. RITUXIMAB [Suspect]
     Active Substance: RITUXIMAB
  604. RITUXIMAB [Suspect]
     Active Substance: RITUXIMAB
  605. RITUXIMAB [Suspect]
     Active Substance: RITUXIMAB
  606. RITUXIMAB [Suspect]
     Active Substance: RITUXIMAB
  607. RITUXIMAB [Suspect]
     Active Substance: RITUXIMAB
     Route: 042
  608. DESOXIMETASONE [Suspect]
     Active Substance: DESOXIMETASONE
     Indication: Rheumatoid arthritis
     Route: 048
  609. DESOXIMETASONE [Suspect]
     Active Substance: DESOXIMETASONE
     Indication: Product used for unknown indication
     Dosage: 25 MG, WE
  610. DESOXIMETASONE [Suspect]
     Active Substance: DESOXIMETASONE
  611. DESOXIMETASONE [Suspect]
     Active Substance: DESOXIMETASONE
  612. DESOXIMETASONE [Suspect]
     Active Substance: DESOXIMETASONE
     Route: 003
  613. DESOXIMETASONE [Suspect]
     Active Substance: DESOXIMETASONE
     Route: 042
  614. DESOXIMETASONE [Suspect]
     Active Substance: DESOXIMETASONE
  615. DESOXIMETASONE [Suspect]
     Active Substance: DESOXIMETASONE
  616. DESOXIMETASONE [Suspect]
     Active Substance: DESOXIMETASONE
  617. DESOXIMETASONE [Suspect]
     Active Substance: DESOXIMETASONE
     Route: 048
  618. DESOXIMETASONE [Suspect]
     Active Substance: DESOXIMETASONE
  619. DESOXIMETASONE [Suspect]
     Active Substance: DESOXIMETASONE
     Route: 048
  620. CORTISONE [Suspect]
     Active Substance: CORTISONE
     Indication: Rheumatoid arthritis
     Route: 048
  621. CORTISONE [Suspect]
     Active Substance: CORTISONE
     Indication: Bursitis
  622. CORTISONE [Suspect]
     Active Substance: CORTISONE
  623. DICLOFENAC [Suspect]
     Active Substance: DICLOFENAC
     Indication: Rheumatoid arthritis
  624. DICLOFENAC [Suspect]
     Active Substance: DICLOFENAC
  625. DICLOFENAC [Suspect]
     Active Substance: DICLOFENAC
  626. DICLOFENAC [Suspect]
     Active Substance: DICLOFENAC
  627. DICLOFENAC [Suspect]
     Active Substance: DICLOFENAC
  628. DICLOFENAC [Suspect]
     Active Substance: DICLOFENAC
     Route: 048
  629. DICLOFENAC [Suspect]
     Active Substance: DICLOFENAC
  630. DICLOFENAC [Suspect]
     Active Substance: DICLOFENAC
     Route: 048
  631. DICLOFENAC [Suspect]
     Active Substance: DICLOFENAC
  632. DICLOFENAC [Suspect]
     Active Substance: DICLOFENAC
  633. DICLOFENAC [Suspect]
     Active Substance: DICLOFENAC
  634. DICLOFENAC [Suspect]
     Active Substance: DICLOFENAC
  635. DICLOFENAC [Suspect]
     Active Substance: DICLOFENAC
     Route: 048
  636. DICLOFENAC [Suspect]
     Active Substance: DICLOFENAC
  637. DICLOFENAC [Suspect]
     Active Substance: DICLOFENAC
  638. DICLOFENAC [Suspect]
     Active Substance: DICLOFENAC
  639. DICLOFENAC [Suspect]
     Active Substance: DICLOFENAC
  640. DICLOFENAC [Suspect]
     Active Substance: DICLOFENAC
  641. ADALIMUMAB [Suspect]
     Active Substance: ADALIMUMAB
     Indication: Psoriatic arthropathy
     Route: 058
  642. ADALIMUMAB [Suspect]
     Active Substance: ADALIMUMAB
     Indication: Rheumatoid arthritis
     Route: 042
  643. ADALIMUMAB [Suspect]
     Active Substance: ADALIMUMAB
     Indication: Product used for unknown indication
     Route: 048
  644. ADALIMUMAB [Suspect]
     Active Substance: ADALIMUMAB
     Route: 058
  645. ADALIMUMAB [Suspect]
     Active Substance: ADALIMUMAB
     Route: 058
  646. CETIRIZINE [Suspect]
     Active Substance: CETIRIZINE HYDROCHLORIDE
     Indication: Rheumatoid arthritis
  647. CETIRIZINE [Suspect]
     Active Substance: CETIRIZINE HYDROCHLORIDE
     Indication: Systemic lupus erythematosus
     Route: 048
  648. CETIRIZINE [Suspect]
     Active Substance: CETIRIZINE HYDROCHLORIDE
  649. CETIRIZINE [Suspect]
     Active Substance: CETIRIZINE HYDROCHLORIDE
     Route: 048
  650. CETIRIZINE [Suspect]
     Active Substance: CETIRIZINE HYDROCHLORIDE
  651. CETIRIZINE [Suspect]
     Active Substance: CETIRIZINE HYDROCHLORIDE
  652. CETIRIZINE [Suspect]
     Active Substance: CETIRIZINE HYDROCHLORIDE
  653. CETIRIZINE [Suspect]
     Active Substance: CETIRIZINE HYDROCHLORIDE
     Dosage: 10 MG, QD
     Route: 048
  654. TOPICORT [Suspect]
     Active Substance: DESOXIMETASONE
     Indication: Rheumatoid arthritis
     Route: 048
  655. TOPICORT [Suspect]
     Active Substance: DESOXIMETASONE
  656. TOPICORT [Suspect]
     Active Substance: DESOXIMETASONE
  657. TOPICORT [Suspect]
     Active Substance: DESOXIMETASONE
  658. TOPICORT [Suspect]
     Active Substance: DESOXIMETASONE
  659. XELJANZ [Suspect]
     Active Substance: TOFACITINIB CITRATE
     Indication: Rheumatoid arthritis
     Route: 048
  660. XELJANZ [Suspect]
     Active Substance: TOFACITINIB CITRATE
  661. XELJANZ [Suspect]
     Active Substance: TOFACITINIB CITRATE
     Dosage: 5 MG, BID
  662. XELJANZ [Suspect]
     Active Substance: TOFACITINIB CITRATE
     Dosage: 5 MG, BID
  663. XELJANZ [Suspect]
     Active Substance: TOFACITINIB CITRATE
     Route: 048
  664. XELJANZ [Suspect]
     Active Substance: TOFACITINIB CITRATE
  665. XELJANZ [Suspect]
     Active Substance: TOFACITINIB CITRATE
  666. XELJANZ [Suspect]
     Active Substance: TOFACITINIB CITRATE
     Route: 048
  667. XELJANZ [Suspect]
     Active Substance: TOFACITINIB CITRATE
  668. XELJANZ [Suspect]
     Active Substance: TOFACITINIB CITRATE
     Dosage: 5 MG, BID
  669. XELJANZ [Suspect]
     Active Substance: TOFACITINIB CITRATE
     Dosage: 10 MG, QD
  670. XELJANZ [Suspect]
     Active Substance: TOFACITINIB CITRATE
     Dosage: 5 MG, BID
  671. XELJANZ [Suspect]
     Active Substance: TOFACITINIB CITRATE
  672. DICLOFENAC DIETHYLAMINE [Suspect]
     Active Substance: DICLOFENAC DIETHYLAMINE
     Indication: Rheumatoid arthritis
  673. DICLOFENAC DIETHYLAMINE [Suspect]
     Active Substance: DICLOFENAC DIETHYLAMINE
  674. DICLOFENAC DIETHYLAMINE [Suspect]
     Active Substance: DICLOFENAC DIETHYLAMINE
  675. DICLOFENAC DIETHYLAMINE [Suspect]
     Active Substance: DICLOFENAC DIETHYLAMINE
  676. VOLTAREN [Suspect]
     Active Substance: DICLOFENAC SODIUM
     Indication: Product used for unknown indication
  677. VOLTAREN [Suspect]
     Active Substance: DICLOFENAC SODIUM
  678. VOLTAREN [Suspect]
     Active Substance: DICLOFENAC SODIUM
     Route: 048
  679. VOLTAREN [Suspect]
     Active Substance: DICLOFENAC SODIUM
  680. VOLTAREN [Suspect]
     Active Substance: DICLOFENAC SODIUM
  681. VOLTAREN [Suspect]
     Active Substance: DICLOFENAC SODIUM
  682. VOLTAREN [Suspect]
     Active Substance: DICLOFENAC SODIUM
  683. VOLTAREN [Suspect]
     Active Substance: DICLOFENAC SODIUM
  684. VOLTAREN [Suspect]
     Active Substance: DICLOFENAC SODIUM
  685. VOLTAREN [Suspect]
     Active Substance: DICLOFENAC SODIUM
  686. VOLTAREN [Suspect]
     Active Substance: DICLOFENAC SODIUM
  687. REMICADE [Suspect]
     Active Substance: INFLIXIMAB
     Indication: Rheumatoid arthritis
     Route: 042
  688. REMICADE [Suspect]
     Active Substance: INFLIXIMAB
  689. REMICADE [Suspect]
     Active Substance: INFLIXIMAB
     Route: 042
  690. REMICADE [Suspect]
     Active Substance: INFLIXIMAB
  691. REMICADE [Suspect]
     Active Substance: INFLIXIMAB
  692. CHLORHEXIDINE GLUCONATE [Suspect]
     Active Substance: CHLORHEXIDINE GLUCONATE
     Indication: Product used for unknown indication
  693. CHLORHEXIDINE GLUCONATE [Suspect]
     Active Substance: CHLORHEXIDINE GLUCONATE
     Route: 048
  694. CHLORHEXIDINE GLUCONATE [Suspect]
     Active Substance: CHLORHEXIDINE GLUCONATE
     Route: 002
  695. CHLORHEXIDINE GLUCONATE [Suspect]
     Active Substance: CHLORHEXIDINE GLUCONATE
  696. CHLORHEXIDINE GLUCONATE [Suspect]
     Active Substance: CHLORHEXIDINE GLUCONATE
  697. CHLORHEXIDINE GLUCONATE [Suspect]
     Active Substance: CHLORHEXIDINE GLUCONATE
  698. CHLORHEXIDINE GLUCONATE [Suspect]
     Active Substance: CHLORHEXIDINE GLUCONATE
  699. CHLORHEXIDINE GLUCONATE [Suspect]
     Active Substance: CHLORHEXIDINE GLUCONATE
     Route: 002
  700. CHLORHEXIDINE GLUCONATE [Suspect]
     Active Substance: CHLORHEXIDINE GLUCONATE
  701. CHLORHEXIDINE GLUCONATE [Suspect]
     Active Substance: CHLORHEXIDINE GLUCONATE
     Route: 048
  702. HYDROCORTISONE ACETATE [Suspect]
     Active Substance: HYDROCORTISONE ACETATE
     Indication: Rheumatoid arthritis
  703. HYDROCORTISONE ACETATE [Suspect]
     Active Substance: HYDROCORTISONE ACETATE
     Indication: Product used for unknown indication
  704. HYDROCORTISONE ACETATE [Suspect]
     Active Substance: HYDROCORTISONE ACETATE
  705. HYDROCORTISONE ACETATE [Suspect]
     Active Substance: HYDROCORTISONE ACETATE
  706. HYDROCORTISONE ACETATE [Suspect]
     Active Substance: HYDROCORTISONE ACETATE
  707. HYDROCORTISONE ACETATE [Suspect]
     Active Substance: HYDROCORTISONE ACETATE
  708. HYDROCORTISONE ACETATE [Suspect]
     Active Substance: HYDROCORTISONE ACETATE
  709. HYDROCORTISONE ACETATE [Suspect]
     Active Substance: HYDROCORTISONE ACETATE
     Route: 048
  710. HYDROCORTISONE ACETATE [Suspect]
     Active Substance: HYDROCORTISONE ACETATE
  711. HYDROCORTISONE ACETATE [Suspect]
     Active Substance: HYDROCORTISONE ACETATE
  712. HYDROCORTISONE ACETATE [Suspect]
     Active Substance: HYDROCORTISONE ACETATE
  713. HYDROCORTISONE ACETATE [Suspect]
     Active Substance: HYDROCORTISONE ACETATE
  714. HYDROCORTISONE ACETATE [Suspect]
     Active Substance: HYDROCORTISONE ACETATE
     Route: 048
  715. HYDROCORTISONE ACETATE [Suspect]
     Active Substance: HYDROCORTISONE ACETATE
  716. HYDROCORTISONE ACETATE [Suspect]
     Active Substance: HYDROCORTISONE ACETATE
  717. HYDROCORTISONE ACETATE [Suspect]
     Active Substance: HYDROCORTISONE ACETATE
     Route: 003
  718. HYDROCORTISONE ACETATE [Suspect]
     Active Substance: HYDROCORTISONE ACETATE
     Route: 003
  719. HYDROCORTISONE ACETATE [Suspect]
     Active Substance: HYDROCORTISONE ACETATE
     Route: 048
  720. HYDROCORTISONE ACETATE [Suspect]
     Active Substance: HYDROCORTISONE ACETATE
  721. HYDROCORTISONE ACETATE [Suspect]
     Active Substance: HYDROCORTISONE ACETATE
  722. HYDROCORTISONE ACETATE [Suspect]
     Active Substance: HYDROCORTISONE ACETATE
  723. DESOXIMETASONE [Suspect]
     Active Substance: DESOXIMETASONE
     Indication: Rheumatoid arthritis
     Route: 003
  724. DESOXIMETASONE [Suspect]
     Active Substance: DESOXIMETASONE
     Route: 003
  725. DESOXIMETASONE [Suspect]
     Active Substance: DESOXIMETASONE
  726. DESOXIMETASONE [Suspect]
     Active Substance: DESOXIMETASONE
     Route: 058
  727. DESOXIMETASONE [Suspect]
     Active Substance: DESOXIMETASONE
     Route: 048
  728. DESOXIMETASONE [Suspect]
     Active Substance: DESOXIMETASONE
     Route: 058
  729. DESOXIMETASONE [Suspect]
     Active Substance: DESOXIMETASONE
     Route: 048
  730. DESOXIMETASONE [Suspect]
     Active Substance: DESOXIMETASONE
  731. DESOXIMETASONE [Suspect]
     Active Substance: DESOXIMETASONE
     Indication: Rheumatoid arthritis
  732. DESOXIMETASONE [Suspect]
     Active Substance: DESOXIMETASONE
     Route: 058
  733. DESOXIMETASONE [Suspect]
     Active Substance: DESOXIMETASONE
     Route: 048
  734. DESOXIMETASONE [Suspect]
     Active Substance: DESOXIMETASONE
     Route: 003
  735. DESOXIMETASONE [Suspect]
     Active Substance: DESOXIMETASONE
  736. TOFACITINIB CITRATE [Suspect]
     Active Substance: TOFACITINIB CITRATE
     Indication: Psoriatic arthropathy
  737. TOFACITINIB CITRATE [Suspect]
     Active Substance: TOFACITINIB CITRATE
     Indication: Rheumatoid arthritis
     Route: 048
  738. TOFACITINIB CITRATE [Suspect]
     Active Substance: TOFACITINIB CITRATE
     Route: 058
  739. TOFACITINIB CITRATE [Suspect]
     Active Substance: TOFACITINIB CITRATE
     Route: 048
  740. TOFACITINIB CITRATE [Suspect]
     Active Substance: TOFACITINIB CITRATE
  741. TOFACITINIB CITRATE [Suspect]
     Active Substance: TOFACITINIB CITRATE
  742. SULFASALAZINE [Suspect]
     Active Substance: SULFASALAZINE
     Indication: Rheumatoid arthritis
     Route: 048
  743. SULFASALAZINE [Suspect]
     Active Substance: SULFASALAZINE
     Route: 048
  744. SULFASALAZINE [Suspect]
     Active Substance: SULFASALAZINE
  745. SULFASALAZINE [Suspect]
     Active Substance: SULFASALAZINE
  746. SULFASALAZINE [Suspect]
     Active Substance: SULFASALAZINE
     Route: 048
  747. SULFASALAZINE [Suspect]
     Active Substance: SULFASALAZINE
  748. SULFASALAZINE [Suspect]
     Active Substance: SULFASALAZINE
     Route: 048
  749. SULFASALAZINE [Suspect]
     Active Substance: SULFASALAZINE
  750. POVIDONE-IODINE [Suspect]
     Active Substance: POVIDONE-IODINE
     Indication: Product used for unknown indication
  751. POVIDONE-IODINE [Suspect]
     Active Substance: POVIDONE-IODINE
  752. POVIDONE-IODINE [Suspect]
     Active Substance: POVIDONE-IODINE
  753. POVIDONE-IODINE [Suspect]
     Active Substance: POVIDONE-IODINE
  754. DICLOFENAC [Suspect]
     Active Substance: DICLOFENAC
     Indication: Product used for unknown indication
     Route: 048
  755. DICLOFENAC [Suspect]
     Active Substance: DICLOFENAC
  756. DICLOFENAC [Suspect]
     Active Substance: DICLOFENAC
  757. TUMS [Suspect]
     Active Substance: CALCIUM CARBONATE
     Indication: Product used for unknown indication
  758. TUMS [Suspect]
     Active Substance: CALCIUM CARBONATE
  759. TUMS [Suspect]
     Active Substance: CALCIUM CARBONATE
  760. DICLOFENAC SODIUM [Suspect]
     Active Substance: DICLOFENAC SODIUM
     Indication: Product used for unknown indication
  761. DIETARY SUPPLEMENT\MINERALS\VITAMINS [Suspect]
     Active Substance: DIETARY SUPPLEMENT\MINERALS\VITAMINS
     Indication: Rheumatoid arthritis
  762. DIETARY SUPPLEMENT\MINERALS\VITAMINS [Suspect]
     Active Substance: DIETARY SUPPLEMENT\MINERALS\VITAMINS
     Indication: Product used for unknown indication
  763. DIETARY SUPPLEMENT\MINERALS\VITAMINS [Suspect]
     Active Substance: DIETARY SUPPLEMENT\MINERALS\VITAMINS
  764. DIETARY SUPPLEMENT\MINERALS\VITAMINS [Suspect]
     Active Substance: DIETARY SUPPLEMENT\MINERALS\VITAMINS
     Route: 016
  765. DIETARY SUPPLEMENT\MINERALS\VITAMINS [Suspect]
     Active Substance: DIETARY SUPPLEMENT\MINERALS\VITAMINS
     Route: 016
  766. DIETARY SUPPLEMENT\MINERALS\VITAMINS [Suspect]
     Active Substance: DIETARY SUPPLEMENT\MINERALS\VITAMINS
  767. ACTEMRA [Suspect]
     Active Substance: TOCILIZUMAB
     Indication: Rheumatoid arthritis
     Route: 048
  768. ACTEMRA [Suspect]
     Active Substance: TOCILIZUMAB
     Route: 042
  769. ACTEMRA [Suspect]
     Active Substance: TOCILIZUMAB
     Route: 042
  770. ACTEMRA [Suspect]
     Active Substance: TOCILIZUMAB
     Route: 042
  771. ACTEMRA [Suspect]
     Active Substance: TOCILIZUMAB
     Route: 042
  772. ACTEMRA [Suspect]
     Active Substance: TOCILIZUMAB
  773. ACTEMRA [Suspect]
     Active Substance: TOCILIZUMAB
  774. ACTEMRA [Suspect]
     Active Substance: TOCILIZUMAB
  775. ACTEMRA [Suspect]
     Active Substance: TOCILIZUMAB
  776. ACTEMRA [Suspect]
     Active Substance: TOCILIZUMAB
  777. ACTEMRA [Suspect]
     Active Substance: TOCILIZUMAB
     Route: 042
  778. ACTEMRA [Suspect]
     Active Substance: TOCILIZUMAB
     Route: 042
  779. ACTEMRA [Suspect]
     Active Substance: TOCILIZUMAB
     Route: 042
  780. ACTEMRA [Suspect]
     Active Substance: TOCILIZUMAB
     Route: 048
  781. ACTEMRA [Suspect]
     Active Substance: TOCILIZUMAB
     Route: 042
  782. ACTEMRA [Suspect]
     Active Substance: TOCILIZUMAB
     Route: 016
  783. ACTEMRA [Suspect]
     Active Substance: TOCILIZUMAB
  784. ACTEMRA [Suspect]
     Active Substance: TOCILIZUMAB
     Route: 042
  785. ACTEMRA [Suspect]
     Active Substance: TOCILIZUMAB
     Route: 042
  786. ACTEMRA [Suspect]
     Active Substance: TOCILIZUMAB
     Route: 042
  787. ACTEMRA [Suspect]
     Active Substance: TOCILIZUMAB
     Route: 042
  788. ACTEMRA [Suspect]
     Active Substance: TOCILIZUMAB
     Route: 042
  789. ACTEMRA [Suspect]
     Active Substance: TOCILIZUMAB
     Route: 042
  790. ACTEMRA [Suspect]
     Active Substance: TOCILIZUMAB
     Route: 042
  791. ACTEMRA [Suspect]
     Active Substance: TOCILIZUMAB
  792. ACTEMRA [Suspect]
     Active Substance: TOCILIZUMAB
  793. ACTEMRA [Suspect]
     Active Substance: TOCILIZUMAB
  794. ACTEMRA [Suspect]
     Active Substance: TOCILIZUMAB
  795. ACTEMRA [Suspect]
     Active Substance: TOCILIZUMAB
  796. ACTEMRA [Suspect]
     Active Substance: TOCILIZUMAB
     Route: 042
  797. ACTEMRA [Suspect]
     Active Substance: TOCILIZUMAB
     Route: 048
  798. ACTEMRA [Suspect]
     Active Substance: TOCILIZUMAB
     Route: 042
  799. ACTEMRA [Suspect]
     Active Substance: TOCILIZUMAB
     Route: 042
  800. ACTEMRA [Suspect]
     Active Substance: TOCILIZUMAB
  801. ACTEMRA [Suspect]
     Active Substance: TOCILIZUMAB
  802. SIMPONI [Suspect]
     Active Substance: GOLIMUMAB
     Indication: Rheumatoid arthritis
     Route: 058
  803. SIMPONI [Suspect]
     Active Substance: GOLIMUMAB
     Indication: Psoriatic arthropathy
     Route: 058
  804. SIMPONI [Suspect]
     Active Substance: GOLIMUMAB
     Route: 058
  805. SIMPONI [Suspect]
     Active Substance: GOLIMUMAB
     Route: 042
  806. SIMPONI [Suspect]
     Active Substance: GOLIMUMAB
     Route: 058
  807. SIMPONI [Suspect]
     Active Substance: GOLIMUMAB
  808. SIMPONI [Suspect]
     Active Substance: GOLIMUMAB
     Route: 052
  809. SIMPONI [Suspect]
     Active Substance: GOLIMUMAB
     Route: 058
  810. SIMPONI [Suspect]
     Active Substance: GOLIMUMAB

REACTIONS (19)
  - Systemic lupus erythematosus [Fatal]
  - Sleep disorder due to general medical condition, insomnia type [Fatal]
  - Joint swelling [Fatal]
  - Blister [Fatal]
  - Rheumatoid arthritis [Fatal]
  - Wound [Fatal]
  - Pruritus [Fatal]
  - Hepatic enzyme increased [Fatal]
  - Hypersensitivity [Fatal]
  - Rash [Fatal]
  - Weight increased [Fatal]
  - Drug intolerance [Fatal]
  - Musculoskeletal stiffness [Fatal]
  - Sinusitis [Fatal]
  - Alopecia [Fatal]
  - Synovitis [Fatal]
  - Stomatitis [Fatal]
  - Swelling [Fatal]
  - Impaired healing [Fatal]
